FAERS Safety Report 8357209-4 (Version None)
Quarter: 2012Q2

REPORT INFORMATION
  Report Type: 
  Country: None (occurrence: None)
  Receive Date: 20120514
  Receipt Date: 20120510
  Transmission Date: 20120825
  Serious: Yes (Hospitalization, Other)
  Sender: FDA-Public Use
  Company Number: US-ROCHE-1058776

PATIENT
  Sex: Female
  Weight: 83.99 kg

DRUGS (4)
  1. DOXORUBICIN HCL [Suspect]
     Indication: BREAST CANCER
     Dosage: REPORTED AS ADRIAMYCIN
     Route: 042
     Dates: start: 20110921, end: 20111014
  2. PACLITAXEL [Suspect]
     Indication: BREAST CANCER
     Route: 042
     Dates: start: 20111104, end: 20120101
  3. HERCEPTIN [Suspect]
     Indication: BREAST CANCER
     Route: 042
     Dates: start: 20111104, end: 20120101
  4. CYCLOPHOSPHAMIDE [Suspect]
     Indication: BREAST CANCER
     Dosage: REPORTED AS CYTOXAN
     Route: 042
     Dates: start: 20110921, end: 20111014

REACTIONS (2)
  - CARDIAC FAILURE [None]
  - FEBRILE NEUTROPENIA [None]
